FAERS Safety Report 7417903-6 (Version None)
Quarter: 2011Q2

REPORT INFORMATION
  Report Type: 
  Country: None (occurrence: None)
  Receive Date: 20110415
  Receipt Date: 20110407
  Transmission Date: 20111010
  Serious: Yes (Other)
  Sender: FDA-Public Use
  Company Number: JP-GENZYME-FLUD-1001035

PATIENT
  Age: 26 Year

DRUGS (8)
  1. MELPHALAN [Suspect]
     Indication: CORD BLOOD TRANSPLANT THERAPY
  2. THYMOGLOBULIN [Suspect]
     Indication: IMMUNOSUPPRESSANT DRUG THERAPY
     Dosage: UNK
     Route: 065
  3. TACROLIMUS [Concomitant]
     Indication: PROPHYLAXIS AGAINST GRAFT VERSUS HOST DISEASE
     Route: 065
  4. FLUDARA [Suspect]
     Indication: CORD BLOOD TRANSPLANT THERAPY
  5. CYCLOSPORINE [Concomitant]
     Route: 065
  6. FLUDARA [Suspect]
     Indication: APLASTIC ANAEMIA
     Dosage: 25 MG/M2, QD
     Route: 065
  7. MELPHALAN [Suspect]
     Indication: APLASTIC ANAEMIA
     Dosage: 40 MG/M2, QD
     Route: 065
  8. CYCLOSPORINE [Suspect]
     Indication: IMMUNOSUPPRESSANT DRUG THERAPY
     Route: 065

REACTIONS (2)
  - TRANSPLANT FAILURE [None]
  - PNEUMOCYSTIS JIROVECI PNEUMONIA [None]
